FAERS Safety Report 23330073 (Version 1)
Quarter: 2023Q4

REPORT INFORMATION
  Report Type: Spontaneous
  Country: US (occurrence: US)
  Receive Date: 20231222
  Receipt Date: 20231222
  Transmission Date: 20240109
  Serious: No
  Sender: FDA-Public Use
  Company Number: US-002147023-NVSC2023US164665

PATIENT

DRUGS (7)
  1. CLOBETASOL [Suspect]
     Active Substance: CLOBETASOL
     Indication: Swelling
     Dosage: UNK
     Route: 065
  2. CLOBETASOL [Suspect]
     Active Substance: CLOBETASOL
     Indication: Eczema
  3. CLOBETASOL [Suspect]
     Active Substance: CLOBETASOL
     Indication: Erythema
  4. CLOBETASOL [Suspect]
     Active Substance: CLOBETASOL
     Indication: Pruritus
  5. CLOBETASOL [Suspect]
     Active Substance: CLOBETASOL
     Indication: Psoriasis
  6. CLOBETASOL [Suspect]
     Active Substance: CLOBETASOL
     Indication: Rash
  7. TACROLIMUS [Suspect]
     Active Substance: TACROLIMUS
     Indication: Psoriasis
     Dosage: UNK
     Route: 065

REACTIONS (1)
  - Treatment failure [Unknown]
